FAERS Safety Report 6054350-6 (Version None)
Quarter: 2009Q1

REPORT INFORMATION
  Report Type: 
  Country: None (occurrence: None)
  Receive Date: 20090127
  Receipt Date: 20090119
  Transmission Date: 20090719
  Serious: Yes (Hospitalization)
  Sender: FDA-Public Use
  Company Number: AU-SANOFI-SYNTHELABO-A01200810839

PATIENT
  Sex: Female

DRUGS (3)
  1. PLAVIX [Suspect]
     Indication: STENT PLACEMENT
     Route: 048
     Dates: start: 20080617
  2. PLAVIX [Suspect]
     Indication: ANGINA UNSTABLE
     Route: 048
     Dates: start: 20080617
  3. ASPIRIN [Suspect]
     Indication: DRUG USE FOR UNKNOWN INDICATION
     Dosage: UNK
     Route: 065

REACTIONS (5)
  - ILIAC ARTERY STENOSIS [None]
  - INTERMITTENT CLAUDICATION [None]
  - PAIN IN EXTREMITY [None]
  - POST PROCEDURAL HAEMATOMA [None]
  - RETROPERITONEAL HAEMATOMA [None]
